FAERS Safety Report 24963983 (Version 1)
Quarter: 2025Q1

REPORT INFORMATION
  Report Type: Spontaneous
  Country: ES (occurrence: ES)
  Receive Date: 20250213
  Receipt Date: 20250213
  Transmission Date: 20250408
  Serious: Yes (Hospitalization)
  Sender: TEVA
  Company Number: None

PATIENT
  Age: 76 Year
  Sex: Male

DRUGS (1)
  1. CAPECITABINE [Suspect]
     Active Substance: CAPECITABINE
     Indication: Cholangiocarcinoma
     Dosage: 1500 MG EVERY 12 HOURS, FOR 14 DAYS ON AND 7 DAYS OFF (21-DAY CYCLES IN TOTAL); CAPECITABINA (1224A)
     Route: 048
     Dates: start: 20250103, end: 20250110

REACTIONS (1)
  - Obstruction gastric [Recovered/Resolved]

NARRATIVE: CASE EVENT DATE: 20250110
